FAERS Safety Report 5955888-X (Version None)
Quarter: 2008Q4

REPORT INFORMATION
  Report Type: 
  Country: None (occurrence: None)
  Receive Date: 20081113
  Receipt Date: 20081105
  Transmission Date: 20090506
  Serious: Yes (Other)
  Sender: FDA-Public Use
  Company Number: 2008110009

PATIENT
  Age: 36 Year
  Sex: Male
  Weight: 86 kg

DRUGS (2)
  1. SOMA [Suspect]
     Indication: MUSCLE SPASMS
     Dosage: 1050 MG (350 MG, 3 IN 1 D), ORAL
     Route: 048
     Dates: start: 20080505
  2. GABAPENTIN [Suspect]
     Indication: NEUROPATHY PERIPHERAL
     Dosage: 1200 MG (400 MG, 3 IN1 D), ORAL
     Route: 048
     Dates: start: 20080505, end: 20080710

REACTIONS (1)
  - EJACULATION FAILURE [None]
